FAERS Safety Report 11907733 (Version 2)
Quarter: 2017Q1

REPORT INFORMATION
  Report Type: Report from Study
  Country: None (occurrence: US)
  Receive Date: 20160111
  Receipt Date: 20170227
  Transmission Date: 20170428
  Serious: No
  Sender: FDA-Public Use
  Company Number: US-ABBVIE-15P-163-1501961-00

PATIENT
  Age: 74 Year
  Sex: Male

DRUGS (1)
  1. DUOPA [Suspect]
     Active Substance: CARBIDOPA\LEVODOPA
     Indication: PRODUCT USED FOR UNKNOWN INDICATION
     Route: 065
     Dates: start: 20151106

REACTIONS (3)
  - Pyrexia [Recovered/Resolved]
  - Device issue [Unknown]
  - Stoma site infection [Unknown]

NARRATIVE: CASE EVENT DATE: 20151113
